FAERS Safety Report 15395843 (Version 1)
Quarter: 2018Q3

REPORT INFORMATION
  Report Type: Spontaneous
  Country: US (occurrence: US)
  Receive Date: 20180912
  Receipt Date: 20180912
  Transmission Date: 20181010
  Serious: Yes (Other)
  Sender: FDA-Public Use
  Company Number: None

PATIENT
  Age: 81 Year
  Sex: Male
  Weight: 83.7 kg

DRUGS (7)
  1. ACYCLOVIR. [Concomitant]
     Active Substance: ACYCLOVIR
  2. BACTRIM DS [Concomitant]
     Active Substance: SULFAMETHOXAZOLE\TRIMETHOPRIM
  3. AMLODIPINE [Concomitant]
     Active Substance: AMLODIPINE BESYLATE
  4. PAMIDRONATE [Concomitant]
     Active Substance: PAMIDRONATE DISODIUM
  5. NINLARO [Suspect]
     Active Substance: IXAZOMIB CITRATE
     Indication: PLASMA CELL LEUKAEMIA
     Route: 048
     Dates: start: 20180711
  6. DEXAMETHASONE. [Concomitant]
     Active Substance: DEXAMETHASONE
  7. WARFARIN [Concomitant]
     Active Substance: WARFARIN

REACTIONS (1)
  - Platelet count decreased [None]
